FAERS Safety Report 24724632 (Version 1)
Quarter: 2024Q4

REPORT INFORMATION
  Report Type: Spontaneous
  Country: CA (occurrence: CA)
  Receive Date: 20241212
  Receipt Date: 20241212
  Transmission Date: 20250115
  Serious: Yes (Hospitalization, Other)
  Sender: CELLTRION
  Company Number: CA-CELLTRION INC.-2024CA030783

PATIENT

DRUGS (7)
  1. ADALIMUMAB [Suspect]
     Active Substance: ADALIMUMAB
     Indication: Crohn^s disease
     Dosage: 1.0 DOSAGE FORMS
     Route: 065
  2. AZATHIOPRINE [Concomitant]
     Active Substance: AZATHIOPRINE
     Dosage: 150.0 MILLIGRAM
     Route: 065
  3. AZATHIOPRINE SODIUM [Concomitant]
     Active Substance: AZATHIOPRINE SODIUM
     Dosage: UNK
  4. IMMUNE GLOBULIN NOS [Concomitant]
     Active Substance: IMMUNE GLOBULIN NOS
     Dosage: UNK
     Route: 042
  5. INFLIXIMAB [Concomitant]
     Active Substance: INFLIXIMAB
     Dosage: 300.0 MILLIGRAM
     Route: 042
  6. INFLIXIMAB [Concomitant]
     Active Substance: INFLIXIMAB
     Dosage: 300.0 MILLIGRAM
     Route: 042
  7. INFLIXIMAB [Concomitant]
     Active Substance: INFLIXIMAB
     Dosage: 1.0 DOSAGE FORMS
     Route: 042

REACTIONS (4)
  - Frequent bowel movements [Not Recovered/Not Resolved]
  - Abdominal pain [Not Recovered/Not Resolved]
  - Hypokalaemia [Not Recovered/Not Resolved]
  - Drug ineffective [Not Recovered/Not Resolved]
